FAERS Safety Report 19877750 (Version 3)
Quarter: 2021Q4

REPORT INFORMATION
  Report Type: Report from Study
  Country: MX (occurrence: MX)
  Receive Date: 20210923
  Receipt Date: 20211009
  Transmission Date: 20220303
  Serious: Yes (Life-Threatening, Other)
  Sender: FDA-Public Use
  Company Number: NVSC2021MX215827

PATIENT
  Age: 31 Year
  Sex: Male

DRUGS (3)
  1. COSENTYX [Suspect]
     Active Substance: SECUKINUMAB
     Indication: Ankylosing spondylitis
     Dosage: 150 MG, QMO
     Route: 058
     Dates: start: 2019
  2. SULFASALAZINE [Concomitant]
     Active Substance: SULFASALAZINE
     Indication: Ill-defined disorder
     Dosage: 6 G, QD
     Route: 048
     Dates: start: 2018
  3. INDOMETHACIN [Concomitant]
     Active Substance: INDOMETHACIN
     Indication: Pain
     Dosage: UNK, PRN
     Route: 048
     Dates: start: 2018

REACTIONS (4)
  - Condition aggravated [Not Recovered/Not Resolved]
  - Spinal disorder [Unknown]
  - Spinal column injury [Unknown]
  - Pain [Unknown]

NARRATIVE: CASE EVENT DATE: 20210918
